FAERS Safety Report 5507136-2 (Version None)
Quarter: 2007Q4

REPORT INFORMATION
  Report Type: 
  Country: None (occurrence: None)
  Receive Date: 20071102
  Receipt Date: 20071019
  Transmission Date: 20080405
  Serious: Yes (Hospitalization)
  Sender: FDA-Public Use
  Company Number: 238115K07USA

PATIENT
  Age: 78 Year
  Sex: Male
  Weight: 81.6475 kg

DRUGS (4)
  1. REBIF [Suspect]
     Indication: MULTIPLE SCLEROSIS
     Dosage: 44 MCG, 3 IN 1 WEEKS, SUBCUTANEOUS
     Route: 058
     Dates: start: 20030812, end: 20071001
  2. PROVIGIL [Concomitant]
  3. PROZAC [Concomitant]
  4. VYTORIN [Concomitant]

REACTIONS (8)
  - ASTHENIA [None]
  - DEHYDRATION [None]
  - INFLAMMATION [None]
  - INJECTION SITE CELLULITIS [None]
  - INJECTION SITE DISCOLOURATION [None]
  - INJECTION SITE INDURATION [None]
  - INJECTION SITE PAIN [None]
  - INJECTION SITE WARMTH [None]
